FAERS Safety Report 10681588 (Version 3)
Quarter: 2015Q1

REPORT INFORMATION
  Report Type: Report from Study
  Country: CA (occurrence: CA)
  Receive Date: 20141230
  Receipt Date: 20150224
  Transmission Date: 20150720
  Serious: Yes (Other)
  Sender: FDA-Public Use
  Company Number: CA-ROCHE-1152212

PATIENT
  Age: 46 Year
  Sex: Female
  Weight: 90.5 kg

DRUGS (5)
  1. ACTEMRA [Suspect]
     Active Substance: TOCILIZUMAB
     Route: 042
     Dates: start: 20121101, end: 20130826
  2. CELEBREX [Concomitant]
     Active Substance: CELECOXIB
  3. ACTEMRA [Suspect]
     Active Substance: TOCILIZUMAB
     Indication: RHEUMATOID ARTHRITIS
     Route: 042
     Dates: start: 20110712
  4. PANTOLOC [Concomitant]
     Active Substance: PANTOPRAZOLE SODIUM
  5. PREDNISONE. [Concomitant]
     Active Substance: PREDNISONE

REACTIONS (31)
  - Nausea [Not Recovered/Not Resolved]
  - Stress [Unknown]
  - Synovial disorder [Unknown]
  - Rheumatoid arthritis [Unknown]
  - Abortion spontaneous [Unknown]
  - Osteoarthritis [Unknown]
  - Skin lesion [Recovered/Resolved]
  - Red blood cell sedimentation rate increased [Unknown]
  - White blood cell count increased [Unknown]
  - Iron deficiency [Not Recovered/Not Resolved]
  - Nasopharyngitis [Not Recovered/Not Resolved]
  - Nasopharyngitis [Not Recovered/Not Resolved]
  - Seasonal allergy [Unknown]
  - Menstruation irregular [Not Recovered/Not Resolved]
  - Livedo reticularis [Unknown]
  - C-reactive protein increased [Unknown]
  - Crepitations [Unknown]
  - Productive cough [Not Recovered/Not Resolved]
  - Psoriatic arthropathy [Unknown]
  - Anti-cyclic citrullinated peptide antibody positive [Unknown]
  - Rhinorrhoea [Not Recovered/Not Resolved]
  - Joint crepitation [Unknown]
  - Psoriasis [Unknown]
  - Rhinorrhoea [Not Recovered/Not Resolved]
  - Fatigue [Unknown]
  - Joint effusion [Unknown]
  - Asthma [Unknown]
  - Headache [Not Recovered/Not Resolved]
  - Weight increased [Not Recovered/Not Resolved]
  - Exposure during pregnancy [Unknown]
  - Rheumatoid factor positive [Unknown]

NARRATIVE: CASE EVENT DATE: 2012
